FAERS Safety Report 9800248 (Version 2)
Quarter: 2014Q1

REPORT INFORMATION
  Report Type: Report from Study
  Country: US (occurrence: US)
  Receive Date: 20140106
  Receipt Date: 20140106
  Transmission Date: 20141002
  Serious: Yes (Death)
  Sender: FDA-Public Use
  Company Number: US-ABBVIE-13P-163-1133297-00

PATIENT
  Sex: Female
  Weight: 58.57 kg

DRUGS (9)
  1. HUMIRA [Suspect]
     Indication: RHEUMATOID ARTHRITIS
     Route: 058
     Dates: start: 20080424
  2. PREDNISONE [Concomitant]
     Dosage: 10 TO 20 MG A DAY
  3. VOLTAREN [Concomitant]
  4. MIACALCIN [Concomitant]
  5. LIDODERM [Concomitant]
     Dosage: 1-3 PATCHES PRN
  6. PLAQUENIL [Concomitant]
  7. FLEXERIL [Concomitant]
  8. NORCO [Concomitant]
     Dosage: 10/325 Q 4-6 HRS PRN
  9. XANAX [Concomitant]
     Dosage: 1-2 QHS PRN
     Route: 048

REACTIONS (1)
  - Myocardial infarction [Fatal]
